FAERS Safety Report 20865683 (Version 1)
Quarter: 2022Q2

REPORT INFORMATION
  Report Type: Spontaneous
  Country: CN (occurrence: CN)
  Receive Date: 20220524
  Receipt Date: 20220524
  Transmission Date: 20220721
  Serious: No
  Sender: FDA-Public Use
  Company Number: CN-LUPIN PHARMACEUTICALS INC.-2022-07314

PATIENT
  Age: 48 Year
  Sex: Female

DRUGS (10)
  1. RIFABUTIN [Suspect]
     Active Substance: RIFABUTIN
     Indication: Mycobacterium chelonae infection
     Dosage: 300 MILLIGRAM, QD
     Route: 048
     Dates: start: 2020, end: 2020
  2. RIFABUTIN [Suspect]
     Active Substance: RIFABUTIN
     Indication: Infective spondylitis
  3. MOXIFLOXACIN [Suspect]
     Active Substance: MOXIFLOXACIN
     Indication: Mycobacterium chelonae infection
     Dosage: 400 MILLIGRAM, QD (TABLET)
     Route: 048
     Dates: start: 2020, end: 2020
  4. MOXIFLOXACIN [Suspect]
     Active Substance: MOXIFLOXACIN
     Indication: Infective spondylitis
  5. LINEZOLID [Suspect]
     Active Substance: LINEZOLID
     Indication: Mycobacterium chelonae infection
     Dosage: 600 MILLIGRAM, QD
     Route: 048
     Dates: start: 2020
  6. LINEZOLID [Suspect]
     Active Substance: LINEZOLID
     Indication: Infective spondylitis
  7. CLARITHROMYCIN [Suspect]
     Active Substance: CLARITHROMYCIN
     Indication: Mycobacterium chelonae infection
     Dosage: 500 MILLIGRAM, BID
     Route: 048
     Dates: start: 2020, end: 2020
  8. CLARITHROMYCIN [Suspect]
     Active Substance: CLARITHROMYCIN
     Indication: Infective spondylitis
  9. AMIKACIN [Suspect]
     Active Substance: AMIKACIN
     Indication: Mycobacterium chelonae infection
     Dosage: 400 MILLIGRAM, QD
     Route: 030
     Dates: start: 2020
  10. AMIKACIN [Suspect]
     Active Substance: AMIKACIN
     Indication: Infective spondylitis
     Dosage: 600 MILLIGRAM, QD ( INTRAVENOUS DRIP)
     Route: 042
     Dates: start: 2020

REACTIONS (2)
  - Hepatic function abnormal [Recovered/Resolved]
  - Off label use [Unknown]
